FAERS Safety Report 10537470 (Version 1)
Quarter: 2014Q4

REPORT INFORMATION
  Report Type: Spontaneous
  Country: US (occurrence: None)
  Receive Date: 20141022
  Receipt Date: 20141022
  Transmission Date: 20150529
  Serious: No
  Sender: FDA-Public Use
  Company Number: None

PATIENT
  Age: 60 Year
  Sex: Male
  Weight: 49.9 kg

DRUGS (1)
  1. CALCITONIN [Suspect]
     Active Substance: CALCITONIN
     Indication: OSTEOPOROSIS
     Dosage: 1 SPRAY DAILY

REACTIONS (2)
  - Product odour abnormal [None]
  - Instillation site pain [None]

NARRATIVE: CASE EVENT DATE: 20120101
